FAERS Safety Report 16285414 (Version 3)
Quarter: 2019Q2

REPORT INFORMATION
  Report Type: Spontaneous
  Country: US (occurrence: US)
  Receive Date: 20190508
  Receipt Date: 20190615
  Transmission Date: 20190711
  Serious: Yes (Other)
  Sender: FDA-Public Use
  Company Number: US-TEVA-2019-US-1045713

PATIENT
  Sex: Female
  Weight: 54 kg

DRUGS (2)
  1. PROAIR HFA [Suspect]
     Active Substance: ALBUTEROL SULFATE
     Indication: CHRONIC OBSTRUCTIVE PULMONARY DISEASE
     Dosage: 2 PUFFS, AS NEEDED
     Route: 048
     Dates: start: 20190427
  2. ALBUTEROL SULFATE HFA [Suspect]
     Active Substance: ALBUTEROL SULFATE
     Indication: CHRONIC OBSTRUCTIVE PULMONARY DISEASE

REACTIONS (13)
  - Mouth swelling [Unknown]
  - Product odour abnormal [Unknown]
  - Hypoaesthesia oral [Unknown]
  - Hypoaesthesia [Unknown]
  - Eye swelling [Unknown]
  - Nasal congestion [Unknown]
  - Product formulation issue [Unknown]
  - Drug ineffective [Unknown]
  - Peripheral swelling [Unknown]
  - Product quality issue [Unknown]
  - Lip swelling [Unknown]
  - Drug hypersensitivity [Unknown]
  - Dyspnoea [Unknown]

NARRATIVE: CASE EVENT DATE: 20190427
